FAERS Safety Report 14586468 (Version 1)
Quarter: 2018Q1

REPORT INFORMATION
  Report Type: Report from Study
  Country: GB (occurrence: GB)
  Receive Date: 20180301
  Receipt Date: 20180301
  Transmission Date: 20180509
  Serious: Yes (Other)
  Sender: FDA-Public Use
  Company Number: GB-EMD SERONO-E2B_90024618

PATIENT
  Age: 9 Year
  Sex: Female

DRUGS (1)
  1. SOMATROPIN. [Suspect]
     Active Substance: SOMATROPIN
     Indication: BODY HEIGHT BELOW NORMAL
     Dosage: 0.7 MG, DAILY
     Route: 058
     Dates: start: 201406

REACTIONS (4)
  - Haemorrhage [Unknown]
  - Pain of skin [Unknown]
  - Injection site bruising [Unknown]
  - Off label use [Unknown]
